FAERS Safety Report 25341499 (Version 2)
Quarter: 2025Q2

REPORT INFORMATION
  Report Type: Report from Study
  Country: CA (occurrence: CA)
  Receive Date: 20250521
  Receipt Date: 20250617
  Transmission Date: 20250717
  Serious: Yes (Death, Other)
  Sender: PFIZER
  Company Number: CA-PFIZER INC-202500104109

PATIENT
  Age: 52 Year
  Sex: Female
  Weight: 55 kg

DRUGS (4)
  1. FRAGMIN [Suspect]
     Active Substance: DALTEPARIN SODIUM
     Route: 065
  2. BENLYSTA [Suspect]
     Active Substance: BELIMUMAB
     Indication: Systemic lupus erythematosus
     Dosage: 1 EVERY 1 WEEKS
     Route: 065
  3. BENLYSTA [Suspect]
     Active Substance: BELIMUMAB
     Dosage: 1 EVERY 1 WEEKS
     Route: 058
  4. BENLYSTA [Suspect]
     Active Substance: BELIMUMAB
     Route: 065

REACTIONS (16)
  - Death [Fatal]
  - Asthenia [Fatal]
  - Blood creatinine abnormal [Fatal]
  - Blood test abnormal [Fatal]
  - Bunion operation [Fatal]
  - Contusion [Fatal]
  - Cough [Fatal]
  - Glomerular filtration rate abnormal [Fatal]
  - Nasopharyngitis [Fatal]
  - Red blood cell sedimentation rate increased [Fatal]
  - Renal impairment [Fatal]
  - Rhinorrhoea [Fatal]
  - Sleep disorder [Fatal]
  - Pneumonia legionella [Unknown]
  - Systemic lupus erythematosus [Unknown]
  - Product dose omission issue [Unknown]
